FAERS Safety Report 18245088 (Version 2)
Quarter: 2020Q3

REPORT INFORMATION
  Report Type: Spontaneous
  Country: CZ (occurrence: CZ)
  Receive Date: 20200909
  Receipt Date: 20200915
  Transmission Date: 20201103
  Serious: Yes (Other)
  Sender: FDA-Public Use
  Company Number: CZ-REGENERON PHARMACEUTICALS, INC.-2020-74628

PATIENT

DRUGS (6)
  1. AGEN [Interacting]
     Active Substance: AMLODIPINE BESYLATE
     Route: 048
  2. LOSEPRAZOL [Concomitant]
     Active Substance: OMEPRAZOLE
     Route: 048
  3. CITALOPRAM [Concomitant]
     Active Substance: CITALOPRAM HYDROBROMIDE
     Route: 048
  4. PRALUENT [Suspect]
     Active Substance: ALIROCUMAB
     Dosage: UNK
     Route: 058
     Dates: start: 201906, end: 202005
  5. MONOTAB [Concomitant]
     Active Substance: ISOSORBIDE MONONITRATE
     Route: 048
  6. PRALUENT [Suspect]
     Active Substance: ALIROCUMAB
     Dosage: UNK
     Route: 058
     Dates: start: 201906, end: 202005

REACTIONS (5)
  - Injection site reaction [Recovered/Resolved]
  - Tongue oedema [Recovered/Resolved]
  - Dyspnoea [Recovered/Resolved]
  - Condition aggravated [Recovered/Resolved]
  - Hypersensitivity [Recovered/Resolved]
